FAERS Safety Report 13375892 (Version 1)
Quarter: 2017Q1

REPORT INFORMATION
  Report Type: Spontaneous
  Country: PL (occurrence: PL)
  Receive Date: 20170328
  Receipt Date: 20170328
  Transmission Date: 20170429
  Serious: Yes (Life-Threatening)
  Sender: FDA-Public Use
  Company Number: PL-ACCORD-049533

PATIENT
  Sex: Male

DRUGS (5)
  1. VINBLASTINE [Suspect]
     Active Substance: VINBLASTINE
     Indication: FIBROMATOSIS
  2. METHOTREXATE. [Suspect]
     Active Substance: METHOTREXATE
     Indication: FIBROMATOSIS
  3. VINCRISTINE [Suspect]
     Active Substance: VINCRISTINE
     Indication: FIBROMATOSIS
  4. IMATINIB/IMATINIB MESILATE [Suspect]
     Active Substance: IMATINIB
     Indication: FIBROMATOSIS
  5. TAMOXIFEN [Suspect]
     Active Substance: TAMOXIFEN
     Indication: FIBROMATOSIS

REACTIONS (2)
  - Drug ineffective [Unknown]
  - Off label use [Unknown]
